FAERS Safety Report 13187264 (Version 2)
Quarter: 2017Q1

REPORT INFORMATION
  Report Type: Report from Study
  Country: US (occurrence: US)
  Receive Date: 20170206
  Receipt Date: 20170309
  Transmission Date: 20170428
  Serious: Yes (Other)
  Sender: FDA-Public Use
  Company Number: US-ALEXION PHARMACEUTICALS INC.-A201700980

PATIENT
  Sex: Male

DRUGS (2)
  1. SOLIRIS [Suspect]
     Active Substance: ECULIZUMAB
     Indication: HAEMOLYTIC URAEMIC SYNDROME
     Dosage: UNK
     Route: 042
  2. SOLIRIS [Suspect]
     Active Substance: ECULIZUMAB
     Dosage: 1200 MG, Q2W
     Route: 042
     Dates: start: 20140828

REACTIONS (9)
  - Condition aggravated [Unknown]
  - Chronic obstructive pulmonary disease [Unknown]
  - Lymph node calcification [Unknown]
  - Rectal haemorrhage [Unknown]
  - Renal impairment [Unknown]
  - Fatigue [Unknown]
  - Urinary hesitation [Unknown]
  - Arthralgia [Unknown]
  - Haemoglobin decreased [Unknown]
